FAERS Safety Report 22034894 (Version 2)
Quarter: 2023Q1

REPORT INFORMATION
  Report Type: Spontaneous
  Country: BE (occurrence: BE)
  Receive Date: 20230224
  Receipt Date: 20230328
  Transmission Date: 20230418
  Serious: Yes (Hospitalization)
  Sender: FDA-Public Use
  Company Number: BE-002147023-NVSC2023BE035606

PATIENT
  Age: 4 Month
  Sex: Female
  Weight: 4.97 kg

DRUGS (1)
  1. XOLAIR [Suspect]
     Active Substance: OMALIZUMAB
     Indication: Product used for unknown indication
     Dosage: UNK (MATERNAL EXPOSURE DURING PREGNANCY: 300MG,EVERY 4 WEEKS)
     Route: 064

REACTIONS (4)
  - Influenza [Recovered/Resolved]
  - Pyrexia [Recovered/Resolved]
  - Rhinitis [Recovered/Resolved]
  - Foetal exposure during pregnancy [Unknown]

NARRATIVE: CASE EVENT DATE: 20221230
